FAERS Safety Report 13288203 (Version 1)
Quarter: 2017Q1

REPORT INFORMATION
  Report Type: Not Available
  Country: TN (occurrence: TN)
  Receive Date: 20170302
  Receipt Date: 20170302
  Transmission Date: 20170428
  Serious: Yes (Other)
  Sender: FDA-Public Use
  Company Number: TN--2017-TN-000002

PATIENT
  Age: 8 Year
  Sex: Female

DRUGS (1)
  1. METRONIDAZOLE BRAND UNSPECIFIED (VIVIMED) [Suspect]
     Active Substance: METRONIDAZOLE
     Indication: AMOEBIC DYSENTERY
     Dosage: UNKNOWN
     Route: 048

REACTIONS (4)
  - Diplopia [None]
  - Vomiting [None]
  - Tension headache [None]
  - Blindness [Recovered/Resolved]
